FAERS Safety Report 9538017 (Version 9)
Quarter: 2014Q2

REPORT INFORMATION
  Report Type: Spontaneous
  Country: US (occurrence: US)
  Receive Date: 20130919
  Receipt Date: 20140412
  Transmission Date: 20141212
  Serious: Yes (Life-Threatening, Hospitalization)
  Sender: FDA-Public Use
  Company Number: US-JNJFOC-20130310758

PATIENT
  Age: 20 Year
  Sex: 0
  Weight: 55 kg

DRUGS (3)
  1. TYLENOL [Suspect]
     Route: 065
  2. TYLENOL [Suspect]
     Indication: PAIN
     Route: 065
  3. TYLENOL PM [Suspect]
     Indication: SLEEP DISORDER THERAPY
     Route: 065

REACTIONS (6)
  - Brain injury [Recovering/Resolving]
  - Overdose [Unknown]
  - Coma hepatic [Recovering/Resolving]
  - Acute hepatic failure [Recovered/Resolved]
  - Hepatic encephalopathy [Unknown]
  - Brain oedema [Recovering/Resolving]
